FAERS Safety Report 12212147 (Version 1)
Quarter: 2016Q1

REPORT INFORMATION
  Report Type: Spontaneous
  Country: US (occurrence: US)
  Receive Date: 20160325
  Receipt Date: 20160325
  Transmission Date: 20160526
  Serious: Yes (Other)
  Sender: FDA-Public Use
  Company Number: US-PFIZER INC-2016169133

PATIENT
  Sex: Female

DRUGS (1)
  1. DEPO-PROVERA [Suspect]
     Active Substance: MEDROXYPROGESTERONE ACETATE
     Dosage: UNK
     Dates: end: 201409

REACTIONS (7)
  - Alopecia [Unknown]
  - Menopause [Unknown]
  - Amenorrhoea [Recovered/Resolved]
  - Menorrhagia [Unknown]
  - Fatigue [Unknown]
  - Night sweats [Unknown]
  - Urinary tract infection [Unknown]
